FAERS Safety Report 6517708-4 (Version None)
Quarter: 2009Q4

REPORT INFORMATION
  Report Type: 
  Country: None (occurrence: None)
  Receive Date: 20091224
  Receipt Date: 20091222
  Transmission Date: 20100525
  Serious: Yes (Hospitalization)
  Sender: FDA-Public Use
  Company Number: US-ASTRAZENECA-2007UW10964

PATIENT
  Age: 13246 Day
  Sex: Male
  Weight: 83.9 kg

DRUGS (15)
  1. SEROQUEL [Suspect]
     Indication: SLEEP DISORDER
     Route: 048
     Dates: start: 19990101, end: 20060901
  2. SEROQUEL [Suspect]
     Indication: SCHIZOPHRENIA
     Route: 048
     Dates: start: 19990101, end: 20060901
  3. SEROQUEL [Suspect]
     Indication: DEPRESSION
     Route: 048
     Dates: start: 19990101, end: 20060901
  4. SEROQUEL [Suspect]
     Dosage: UPTO 1000 MG
     Route: 048
     Dates: start: 19990101
  5. SEROQUEL [Suspect]
     Dosage: UPTO 1000 MG
     Route: 048
     Dates: start: 19990101
  6. SEROQUEL [Suspect]
     Dosage: UPTO 1000 MG
     Route: 048
     Dates: start: 19990101
  7. SEROQUEL [Suspect]
     Route: 048
     Dates: start: 20041009
  8. SEROQUEL [Suspect]
     Route: 048
     Dates: start: 20041009
  9. SEROQUEL [Suspect]
     Route: 048
     Dates: start: 20041009
  10. ZYPREXA [Suspect]
     Dates: start: 20000101, end: 20060101
  11. RANITIDINE [Concomitant]
     Route: 048
     Dates: start: 20041004
  12. PLAVIX [Concomitant]
     Dates: start: 20030301
  13. WELLBUTRIN [Concomitant]
     Route: 048
     Dates: start: 20050416
  14. CLARINEX [Concomitant]
     Route: 048
     Dates: start: 20041129
  15. DEPAKOTE [Concomitant]
     Indication: MOOD ALTERED
     Dates: start: 20030616

REACTIONS (6)
  - DIABETES MELLITUS [None]
  - DIABETES MELLITUS INADEQUATE CONTROL [None]
  - HYPOGLYCAEMIA [None]
  - HYPOGLYCAEMIC SEIZURE [None]
  - LOSS OF CONSCIOUSNESS [None]
  - SYNCOPE [None]
